FAERS Safety Report 7738700-8 (Version None)
Quarter: 2011Q3

REPORT INFORMATION
  Report Type: 
  Country: None (occurrence: None)
  Receive Date: 20110908
  Receipt Date: 20110907
  Transmission Date: 20111222
  Serious: No
  Sender: FDA-Public Use
  Company Number: US-PFIZER INC-2011210159

PATIENT
  Sex: Male

DRUGS (3)
  1. LIPITOR [Suspect]
     Indication: BLOOD CHOLESTEROL INCREASED
     Dosage: 40 MG, DAILY
     Route: 048
     Dates: start: 20110607
  2. ASPIRIN [Suspect]
     Indication: ANTICOAGULANT THERAPY
     Dosage: 81 MG, DAILY
  3. EFFIENT [Suspect]
     Indication: ANTICOAGULANT THERAPY
     Dosage: 10 MG, DAILY
     Dates: start: 20110607

REACTIONS (2)
  - IMPAIRED HEALING [None]
  - FEELING COLD [None]
